FAERS Safety Report 5030659-X (Version None)
Quarter: 2006Q2

REPORT INFORMATION
  Report Type: 
  Country: None (occurrence: None)
  Receive Date: 20060615
  Receipt Date: 20060602
  Transmission Date: 20061013
  Serious: Yes (Hospitalization)
  Sender: FDA-Public Use
  Company Number: HQWYE172404MAY06

PATIENT
  Age: 68 Year
  Sex: Female

DRUGS (8)
  1. RAPAMUNE [Suspect]
     Indication: PROPHYLAXIS AGAINST TRANSPLANT REJECTION
     Dosage: 2 MG 1X PER 1 DAY ORAL
     Route: 048
     Dates: start: 20031022, end: 20040112
  2. MYCOPHENOLATE MOFETIL [Concomitant]
  3. ZENAPAX [Concomitant]
  4. CORTICOSTEROID NOS (CORTICOSTEROID NOS) [Concomitant]
  5. BACTRIM [Concomitant]
  6. ATENOLOL [Concomitant]
  7. SULFASALAZIN (SULFASALAZINE) [Concomitant]
  8. CYMEVENR (GANCICLOVIR SODIUM) [Concomitant]

REACTIONS (5)
  - CYSTITIS [None]
  - KIDNEY INFECTION [None]
  - MALAISE [None]
  - PYREXIA [None]
  - URINARY SEDIMENT PRESENT [None]
